FAERS Safety Report 7895611-5 (Version None)
Quarter: 2011Q4

REPORT INFORMATION
  Report Type: 
  Country: None (occurrence: None)
  Receive Date: 20111106
  Receipt Date: 20110830
  Transmission Date: 20120403
  Serious: No
  Sender: FDA-Public Use
  Company Number: US-AMGEN-USASP2011044567

PATIENT
  Age: 71 Year
  Sex: Male

DRUGS (1)
  1. ENBREL [Suspect]
     Indication: RHEUMATOID ARTHRITIS
     Dosage: 50 MG, QWK
     Dates: start: 20110804

REACTIONS (6)
  - LIP SWELLING [None]
  - STOMATITIS [None]
  - SEASONAL ALLERGY [None]
  - GLOSSITIS [None]
  - ORAL PAIN [None]
  - CHAPPED LIPS [None]
